FAERS Safety Report 9746368 (Version 1)
Quarter: 2013Q4

REPORT INFORMATION
  Report Type: Spontaneous
  Country: US (occurrence: US)
  Receive Date: 20131211
  Receipt Date: 20131211
  Transmission Date: 20140711
  Serious: Yes (Other)
  Sender: FDA-Public Use
  Company Number: US-PFIZER INC-2013351465

PATIENT
  Age: 62 Year
  Sex: Female
  Weight: 63.49 kg

DRUGS (4)
  1. XANAX [Suspect]
     Dosage: 0.5 MG, UNK
     Route: 048
  2. XANAX [Suspect]
     Dosage: 0.25 MG, UNK (SPLITTING IT INTO HALF)
     Route: 048
  3. EFFEXOR XR [Suspect]
     Dosage: 37.5 MG, UNK
  4. LEXAPRO [Suspect]
     Dosage: 40 MG, UNK

REACTIONS (3)
  - Coma [Unknown]
  - Neck injury [Unknown]
  - Logorrhoea [Unknown]
